FAERS Safety Report 10804294 (Version 1)
Quarter: 2015Q1

REPORT INFORMATION
  Report Type: Report from Study
  Country: US (occurrence: US)
  Receive Date: 20150217
  Receipt Date: 20150217
  Transmission Date: 20150721
  Serious: No
  Sender: FDA-Public Use
  Company Number: US-ABBVIE-14K-163-1256183-00

PATIENT
  Age: 42 Year
  Sex: Female

DRUGS (10)
  1. HUMIRA [Suspect]
     Active Substance: ADALIMUMAB
     Indication: RHEUMATOID ARTHRITIS
  2. ZITHROMAX [Suspect]
     Active Substance: AZITHROMYCIN DIHYDRATE
     Indication: PNEUMONIA
     Route: 065
     Dates: start: 2014
  3. POTASSIUM [Concomitant]
     Active Substance: POTASSIUM
     Indication: BLOOD PRESSURE
  4. UNKNOWN BIRTH CONTROL MEDICATION [Concomitant]
     Active Substance: UNSPECIFIED INGREDIENT
     Indication: PRODUCT USED FOR UNKNOWN INDICATION
  5. FOLIC ACID. [Concomitant]
     Active Substance: FOLIC ACID
     Indication: PRODUCT USED FOR UNKNOWN INDICATION
  6. HUMIRA [Suspect]
     Active Substance: ADALIMUMAB
     Indication: CROHN^S DISEASE
     Route: 065
     Dates: start: 201212
  7. ORELCOL [Concomitant]
     Indication: CHOLECYSTECTOMY
     Dosage: A CHOLESTEROL MEDICATION
  8. NEXIUM [Concomitant]
     Active Substance: ESOMEPRAZOLE MAGNESIUM
     Indication: GASTROOESOPHAGEAL REFLUX DISEASE
  9. ADVIL [Concomitant]
     Active Substance: IBUPROFEN
     Indication: PAIN
  10. ZYRTEC [Concomitant]
     Active Substance: CETIRIZINE HYDROCHLORIDE
     Indication: SEASONAL ALLERGY

REACTIONS (8)
  - Dysacusis [Unknown]
  - Hypoacusis [Unknown]
  - Upper respiratory tract infection [Recovering/Resolving]
  - Inner ear disorder [Unknown]
  - Pneumonia [Recovering/Resolving]
  - Drug ineffective [Unknown]
  - Rheumatoid arthritis [Not Recovered/Not Resolved]
  - Sinusitis [Recovering/Resolving]

NARRATIVE: CASE EVENT DATE: 201212
